FAERS Safety Report 7271762-3 (Version None)
Quarter: 2011Q1

REPORT INFORMATION
  Report Type: 
  Country: None (occurrence: None)
  Receive Date: 20110126
  Receipt Date: 20110118
  Transmission Date: 20110831
  Serious: Yes (Other)
  Sender: FDA-Public Use
  Company Number: DSA_44807_2011

PATIENT
  Sex: Male

DRUGS (3)
  1. FOLACIN /00198401/ [Concomitant]
  2. ESCITALOPRAM [Concomitant]
  3. BUPROPION HYDROCHLORIDE [Suspect]
     Indication: PRODUCT USED FOR UNKNOWN INDICATION
     Dosage: (300 MG DAILY ORAL)
     Route: 048
     Dates: start: 20080101

REACTIONS (5)
  - FATIGUE [None]
  - BLOOD ALKALINE PHOSPHATASE INCREASED [None]
  - ALANINE AMINOTRANSFERASE INCREASED [None]
  - GAMMA-GLUTAMYLTRANSFERASE INCREASED [None]
  - ASPARTATE AMINOTRANSFERASE INCREASED [None]
